FAERS Safety Report 14789733 (Version 1)
Quarter: 2018Q2

REPORT INFORMATION
  Report Type: Spontaneous
  Country: US (occurrence: US)
  Receive Date: 20180423
  Receipt Date: 20180423
  Transmission Date: 20180711
  Serious: No
  Sender: FDA-Public Use
  Company Number: US-PFIZER INC-2018093468

PATIENT
  Age: 30 Year
  Sex: Female
  Weight: 50 kg

DRUGS (2)
  1. XELJANZ [Suspect]
     Active Substance: TOFACITINIB CITRATE
     Dosage: 5 MG, 2X/DAY
     Route: 048
     Dates: end: 2018
  2. XELJANZ [Suspect]
     Active Substance: TOFACITINIB CITRATE
     Indication: MIXED CONNECTIVE TISSUE DISEASE
     Dosage: 1 DF, UNK (ONE TABLET)

REACTIONS (9)
  - Asthenia [Unknown]
  - Malaise [Unknown]
  - Myalgia [Not Recovered/Not Resolved]
  - Memory impairment [Unknown]
  - Product use in unapproved indication [Unknown]
  - Feeling abnormal [Unknown]
  - Pain in extremity [Unknown]
  - Burning sensation [Unknown]
  - Arthralgia [Not Recovered/Not Resolved]

NARRATIVE: CASE EVENT DATE: 201804
